FAERS Safety Report 7272275-5 (Version None)
Quarter: 2011Q1

REPORT INFORMATION
  Report Type: 
  Country: None (occurrence: None)
  Receive Date: 20110128
  Receipt Date: 20110113
  Transmission Date: 20110831
  Serious: Yes (Hospitalization)
  Sender: FDA-Public Use
  Company Number: 2010004861

PATIENT
  Age: 71 Year
  Sex: Female
  Weight: 42.8 kg

DRUGS (2)
  1. ERLOTINIB HYDROCHLORIDE [Suspect]
     Indication: LUNG SQUAMOUS CELL CARCINOMA STAGE UNSPECIFIED
     Dosage: (150 MG,1 X PER 1 DAY),ORAL
     Route: 048
     Dates: start: 20080724, end: 20080810
  2. MS CONTIN [Concomitant]

REACTIONS (3)
  - ELECTROLYTE IMBALANCE [None]
  - DEPRESSED LEVEL OF CONSCIOUSNESS [None]
  - RENAL IMPAIRMENT [None]
